FAERS Safety Report 5677009-3 (Version None)
Quarter: 2008Q1

REPORT INFORMATION
  Report Type: 
  Country: None (occurrence: None)
  Receive Date: 20080324
  Receipt Date: 20080311
  Transmission Date: 20080703
  Serious: Yes (Hospitalization, Other)
  Sender: FDA-Public Use
  Company Number: PHBS2008CA03346

PATIENT
  Age: 31 Year
  Sex: Male

DRUGS (3)
  1. CLOZAPINE [Suspect]
     Indication: SCHIZOPHRENIA, CATATONIC TYPE
     Dosage: 400 MG/DAY
     Route: 065
  2. OLANZAPINE [Concomitant]
     Indication: SCHIZOPHRENIA, CATATONIC TYPE
     Dosage: 15 MG/DAY
  3. LORAZEPAM [Concomitant]
     Indication: SCHIZOPHRENIA, CATATONIC TYPE
     Dosage: 6 MG, PRN
     Route: 065

REACTIONS (11)
  - ACTIVITIES OF DAILY LIVING IMPAIRED [None]
  - ANXIETY [None]
  - CATATONIA [None]
  - DIZZINESS [None]
  - IMPULSIVE BEHAVIOUR [None]
  - MUTISM [None]
  - OBESITY [None]
  - OBSESSIVE-COMPULSIVE DISORDER [None]
  - STARING [None]
  - STEREOTYPY [None]
  - WAXY FLEXIBILITY [None]
